FAERS Safety Report 9263958 (Version 3)
Quarter: 2013Q4

REPORT INFORMATION
  Report Type: Spontaneous
  Country: US (occurrence: US)
  Receive Date: 20130430
  Receipt Date: 20131021
  Transmission Date: 20140711
  Serious: Yes (Hospitalization, Other)
  Sender: FDA-Public Use
  Company Number: US-009507513-1304USA013892

PATIENT
  Sex: Female
  Weight: 61.68 kg

DRUGS (6)
  1. FOSAMAX [Suspect]
     Indication: OSTEOPENIA
     Dosage: 70 MG, QW
     Route: 048
     Dates: start: 20030107, end: 20070626
  2. FOSAMAX [Suspect]
     Indication: OSTEOPOROSIS
     Dosage: 35 MG, UNK
     Route: 048
  3. NEXIUM [Concomitant]
     Dosage: UNK
     Dates: start: 2000
  4. PRINIVIL [Concomitant]
     Indication: HYPERTENSION
     Dosage: UNK
     Route: 048
     Dates: start: 2003, end: 2007
  5. LISINOPRIL [Concomitant]
     Indication: HYPERTENSION
     Dosage: UNK
     Dates: start: 1987
  6. LEVOTHROID [Concomitant]
     Indication: HYPOTHYROIDISM
     Dosage: UNK
     Dates: start: 2002

REACTIONS (34)
  - Femur fracture [Recovered/Resolved]
  - Open reduction of fracture [Unknown]
  - Catheterisation cardiac [Unknown]
  - Hip arthroplasty [Unknown]
  - Hip arthroplasty [Unknown]
  - Anaemia postoperative [Unknown]
  - Deafness [Unknown]
  - Low turnover osteopathy [Unknown]
  - Parkinson^s disease [Unknown]
  - Fall [Unknown]
  - Fall [Unknown]
  - Body height [Unknown]
  - Dyspnoea [Unknown]
  - Onychoclasis [Unknown]
  - Arthropathy [Unknown]
  - Osteoarthritis [Unknown]
  - Temperature intolerance [Unknown]
  - Weight decreased [Unknown]
  - Euthyroid sick syndrome [Unknown]
  - Nocturia [Unknown]
  - Drug prescribing error [Unknown]
  - Foot fracture [Unknown]
  - Bursitis [Unknown]
  - Device failure [Not Recovered/Not Resolved]
  - Dementia [Unknown]
  - Haemorrhagic anaemia [Recovered/Resolved]
  - Drug effect increased [Unknown]
  - Urinary retention [Unknown]
  - Anxiety [Unknown]
  - Varicose vein [Unknown]
  - Osteoporosis [Unknown]
  - Malnutrition [Unknown]
  - Alopecia [Unknown]
  - Constipation [Unknown]
